FAERS Safety Report 7787453-6 (Version None)
Quarter: 2011Q3

REPORT INFORMATION
  Report Type: 
  Country: None (occurrence: None)
  Receive Date: 20110929
  Receipt Date: 20110926
  Transmission Date: 20111222
  Serious: Yes (Hospitalization)
  Sender: FDA-Public Use
  Company Number: FR-ABBOTT-11P-056-0857937-00

PATIENT
  Age: 47 Year
  Sex: Male

DRUGS (20)
  1. DI-HYDAN [Interacting]
     Indication: STATUS EPILEPTICUS
     Dosage: ROUTE: INTRAGASTRIC; 3 TIMES A DAY
     Dates: start: 20110813
  2. ADRENALIN IN OIL INJ [Concomitant]
     Indication: PRODUCT USED FOR UNKNOWN INDICATION
  3. CORDARONE [Concomitant]
     Indication: PRODUCT USED FOR UNKNOWN INDICATION
  4. HEPARIN [Concomitant]
     Indication: PRODUCT USED FOR UNKNOWN INDICATION
  5. LOVENOX [Concomitant]
     Indication: PRODUCT USED FOR UNKNOWN INDICATION
  6. ASPEGIC 325 [Concomitant]
     Indication: PRODUCT USED FOR UNKNOWN INDICATION
  7. ASPIRIN [Concomitant]
     Indication: PRODUCT USED FOR UNKNOWN INDICATION
  8. PHENOBARBITAL TAB [Interacting]
     Indication: STATUS EPILEPTICUS
     Dosage: ROUTE: INTRAGASTRIC
     Dates: start: 20110813, end: 20110902
  9. MIDAZOLAM HCL [Concomitant]
     Indication: PRODUCT USED FOR UNKNOWN INDICATION
  10. AMIODARONE HCL [Concomitant]
     Indication: PRODUCT USED FOR UNKNOWN INDICATION
  11. REOPRO [Concomitant]
     Indication: PRODUCT USED FOR UNKNOWN INDICATION
  12. DOBUTAMINE HCL [Concomitant]
     Indication: PRODUCT USED FOR UNKNOWN INDICATION
  13. BISOPROLOL FUMARATE [Concomitant]
     Indication: PRODUCT USED FOR UNKNOWN INDICATION
  14. FOSPHENYTOIN SODIUM [Concomitant]
     Indication: PRODUCT USED FOR UNKNOWN INDICATION
  15. ANTIBIOTICS [Concomitant]
     Indication: PRODUCT USED FOR UNKNOWN INDICATION
  16. PLAVIX [Concomitant]
     Indication: PRODUCT USED FOR UNKNOWN INDICATION
  17. DEPAKENE [Suspect]
     Indication: STATUS EPILEPTICUS
     Dosage: ROUTE: INTRAGASTRIC; 3 TIMES A DAY
     Dates: start: 20110818
  18. SUFENTANIL CITRATE [Concomitant]
     Indication: PRODUCT USED FOR UNKNOWN INDICATION
  19. PAVULON [Concomitant]
     Indication: PRODUCT USED FOR UNKNOWN INDICATION
  20. RAMIPRIL [Concomitant]
     Indication: PRODUCT USED FOR UNKNOWN INDICATION

REACTIONS (4)
  - DRUG LEVEL DECREASED [None]
  - NEUROLOGICAL DECOMPENSATION [None]
  - OVERDOSE [None]
  - DRUG INTERACTION [None]
